FAERS Safety Report 15734838 (Version 2)
Quarter: 2019Q1

REPORT INFORMATION
  Report Type: Spontaneous
  Country: US (occurrence: US)
  Receive Date: 20181218
  Receipt Date: 20190321
  Transmission Date: 20190417
  Serious: Yes (Other)
  Sender: FDA-Public Use
  Company Number: US-RADIUS HEALTH, INC.-2018US002960

PATIENT
  Sex: Female

DRUGS (1)
  1. TYMLOS [Suspect]
     Active Substance: ABALOPARATIDE
     Indication: OSTEOPOROSIS POSTMENOPAUSAL
     Dosage: 80 MCG, DAILY
     Route: 058
     Dates: start: 20181008, end: 20181210

REACTIONS (9)
  - Pain [Unknown]
  - Abdominal pain [Unknown]
  - Gastric disorder [Recovered/Resolved]
  - Product dose omission [Unknown]
  - Haematochezia [Unknown]
  - Dyschezia [Unknown]
  - Mucous stools [Unknown]
  - Dysuria [Unknown]
  - Constipation [Unknown]
